FAERS Safety Report 7988727-6 (Version None)
Quarter: 2011Q4

REPORT INFORMATION
  Report Type: 
  Country: None (occurrence: None)
  Receive Date: 20111219
  Receipt Date: 20111208
  Transmission Date: 20120403
  Serious: Yes (Life-Threatening, Hospitalization, Other)
  Sender: FDA-Public Use
  Company Number: JP-BRISTOL-MYERS SQUIBB COMPANY-16265142

PATIENT
  Age: 63 Year
  Sex: Male
  Weight: 86 kg

DRUGS (2)
  1. SPRYCEL [Suspect]
     Indication: CHRONIC MYELOID LEUKAEMIA
     Dosage: 28JAN11:ONG:100 X1 MG/D 28SEP:28NOV11:100 MG  5 DAYS ON/2 DAYS OFF SCHEDULE.
     Route: 048
     Dates: start: 20110128
  2. ACETAMINOPHEN [Suspect]
     Route: 048
     Dates: start: 20111126, end: 20111129

REACTIONS (4)
  - RENAL FAILURE ACUTE [None]
  - COMA HEPATIC [None]
  - HEPATITIS ACUTE [None]
  - SEPSIS [None]
